FAERS Safety Report 6260152-8 (Version None)
Quarter: 2009Q3

REPORT INFORMATION
  Report Type: 
  Country: None (occurrence: None)
  Receive Date: 20090708
  Receipt Date: 20090702
  Transmission Date: 20100115
  Serious: Yes (Death)
  Sender: FDA-Public Use
  Company Number: A0791298B

PATIENT
  Sex: Female
  Weight: 69.4 kg

DRUGS (3)
  1. LAPATINIB [Suspect]
     Dosage: 1500MG PER DAY
     Route: 048
     Dates: start: 20081121
  2. CISPLATIN [Suspect]
     Dosage: 100MGM2 CYCLIC
     Route: 042
     Dates: start: 20081203
  3. RADIOTHERAPY [Suspect]
     Dosage: 2GY PER DAY
     Route: 061
     Dates: start: 20081201, end: 20090114

REACTIONS (1)
  - DEATH [None]
